FAERS Safety Report 4340224-5 (Version None)
Quarter: 2004Q1

REPORT INFORMATION
  Report Type: 
  Country: None (occurrence: None)
  Receive Date: 20040329
  Receipt Date: 20040216
  Transmission Date: 20041129
  Serious: No
  Sender: FDA-Public Use
  Company Number: 04P-163-0250903-00

PATIENT
  Age: 60 Year
  Sex: Female
  Weight: 99.3377 kg

DRUGS (10)
  1. HUMIRA [Suspect]
     Indication: RHEUMATOID ARTHRITIS
     Dosage: 40 MG, 1 IN 2 WK, SUBCUTANEOUS
     Route: 058
     Dates: start: 20030101
  2. POTASSIUM CHLORIDE [Concomitant]
  3. DILTIAZEM HYDROCHLORIDE [Concomitant]
  4. DYAZIDE [Concomitant]
  5. GLYBURIDE [Concomitant]
  6. PREDNISONE [Concomitant]
  7. FOLIC ACID [Concomitant]
  8. LOVASTATIN [Concomitant]
  9. HYDROCO-APAP [Concomitant]
  10. ADVAIR DISKUS 100/50 [Concomitant]

REACTIONS (1)
  - DIZZINESS [None]
